FAERS Safety Report 14015812 (Version 15)
Quarter: 2018Q2

REPORT INFORMATION
  Report Type: Spontaneous
  Country: US (occurrence: US)
  Receive Date: 20170927
  Receipt Date: 20180426
  Transmission Date: 20180711
  Serious: Yes (Hospitalization, Other)
  Sender: FDA-Public Use
  Company Number: US-ACTELION-A-NJ2017-160127

PATIENT
  Age: 82 Year
  Sex: Female

DRUGS (8)
  1. TORSEMIDE. [Concomitant]
     Active Substance: TORSEMIDE
  2. VENTAVIS [Suspect]
     Active Substance: ILOPROST
     Indication: PULMONARY ARTERIAL HYPERTENSION
     Dosage: 5 MCG, 5X/DAY
     Route: 055
     Dates: start: 20130206
  3. ADEMPAS [Suspect]
     Active Substance: RIOCIGUAT
     Dosage: 1 MG, TID
     Route: 048
     Dates: start: 20170201
  4. ADEMPAS [Suspect]
     Active Substance: RIOCIGUAT
     Indication: PULMONARY ARTERIAL HYPERTENSION
     Dosage: UNK
     Route: 065
  5. ADEMPAS [Suspect]
     Active Substance: RIOCIGUAT
     Dosage: 1 MG, TID
     Route: 048
     Dates: start: 20160123
  6. VENTAVIS [Suspect]
     Active Substance: ILOPROST
     Dosage: UNK, 6X/DAY
     Route: 055
  7. OPSUMIT [Suspect]
     Active Substance: MACITENTAN
     Indication: PULMONARY ARTERIAL HYPERTENSION
     Dosage: 10 MG, QD
     Route: 048
     Dates: start: 20150528
  8. OXYGEN. [Concomitant]
     Active Substance: OXYGEN
     Dosage: 2 L/MIN, UNK
     Route: 045

REACTIONS (33)
  - Gout [Unknown]
  - Neuralgia [Unknown]
  - Fall [Unknown]
  - Drug dose omission [Unknown]
  - Nervousness [Unknown]
  - Stress [Unknown]
  - Throat cancer [Unknown]
  - Haemoglobin decreased [Unknown]
  - Nasopharyngitis [Unknown]
  - Insomnia [Unknown]
  - Anxiety [Unknown]
  - Volvulus [Unknown]
  - Renal disorder [Unknown]
  - Abdominal pain [Unknown]
  - Device malfunction [Recovered/Resolved]
  - Dyspnoea [Unknown]
  - Pneumonia [Recovering/Resolving]
  - Hypotension [Unknown]
  - Asthenia [Unknown]
  - Frustration tolerance decreased [Unknown]
  - Device use error [Unknown]
  - Right ventricular failure [Unknown]
  - Peripheral swelling [Unknown]
  - Tremor [Unknown]
  - Temporal arteritis [Unknown]
  - Anaemia [Unknown]
  - Fluid overload [Unknown]
  - Fluid retention [Recovering/Resolving]
  - Neck pain [Unknown]
  - Facial bones fracture [Unknown]
  - Headache [Unknown]
  - Exercise tolerance decreased [Unknown]
  - Fatigue [Not Recovered/Not Resolved]

NARRATIVE: CASE EVENT DATE: 201709
